FAERS Safety Report 14113022 (Version 1)
Quarter: 2017Q4

REPORT INFORMATION
  Report Type: Spontaneous
  Country: TW (occurrence: TW)
  Receive Date: 20171022
  Receipt Date: 20171022
  Transmission Date: 20180321
  Serious: Yes (Other)
  Sender: FDA-Public Use
  Company Number: PHHY2017TW152263

PATIENT
  Sex: Female

DRUGS (2)
  1. EXFORGE [Suspect]
     Active Substance: AMLODIPINE BESYLATE\VALSARTAN
     Indication: HYPERTENSION
     Dosage: 1 DF, QD (CONCENTRATION 5/160)
     Route: 048
     Dates: start: 201705, end: 201707
  2. EXFORGE [Suspect]
     Active Substance: AMLODIPINE BESYLATE\VALSARTAN
     Dosage: 1 DF, QD (CONCENTRATION 5/80)
     Route: 048
     Dates: start: 201707

REACTIONS (2)
  - Oedematous kidney [Unknown]
  - Renal atrophy [Unknown]

NARRATIVE: CASE EVENT DATE: 201706
